FAERS Safety Report 10612738 (Version 2)
Quarter: 2015Q1

REPORT INFORMATION
  Report Type: Spontaneous
  Country: US (occurrence: US)
  Receive Date: 20141127
  Receipt Date: 20150130
  Transmission Date: 20150720
  Serious: No
  Sender: FDA-Public Use
  Company Number: US-009507513-1411USA008544

PATIENT
  Age: 15 Year
  Sex: Female
  Weight: 88.89 kg

DRUGS (1)
  1. NEXPLANON [Suspect]
     Active Substance: ETONOGESTREL
     Indication: CONTRACEPTION
     Dosage: SINGLE ROD
     Route: 059
     Dates: start: 20141117

REACTIONS (5)
  - Nausea [Recovered/Resolved]
  - Pain in extremity [Recovered/Resolved]
  - Implant site pain [Not Recovered/Not Resolved]
  - Asthenia [Not Recovered/Not Resolved]
  - Pain [Recovered/Resolved]

NARRATIVE: CASE EVENT DATE: 20141118
